APPROVED DRUG PRODUCT: ARIXTRA
Active Ingredient: FONDAPARINUX SODIUM
Strength: 2.5MG/0.5ML
Dosage Form/Route: SOLUTION;SUBCUTANEOUS
Application: N021345 | Product #001 | TE Code: AP
Applicant: MYLAN IRELAND LTD
Approved: Dec 7, 2001 | RLD: Yes | RS: Yes | Type: RX